FAERS Safety Report 6760028-3 (Version None)
Quarter: 2010Q2

REPORT INFORMATION
  Report Type: 
  Country: None (occurrence: None)
  Receive Date: 20100608
  Receipt Date: 20100309
  Transmission Date: 20101027
  Serious: Yes (Hospitalization)
  Sender: FDA-Public Use
  Company Number: FR-SANOFI-AVENTIS-2010SA013886

PATIENT
  Age: 48 Year
  Sex: Male

DRUGS (7)
  1. FLAGYL [Suspect]
     Route: 065
     Dates: start: 20091230, end: 20100119
  2. AMOXICILLIN AND CLAVULANATE POTASSIUM [Suspect]
     Route: 065
     Dates: start: 20091225, end: 20091230
  3. CIFLOX [Suspect]
     Route: 065
     Dates: start: 20091225, end: 20100206
  4. AMIKACIN [Suspect]
     Route: 065
     Dates: start: 20091225, end: 20091230
  5. FORTUM /UNK/ [Suspect]
     Route: 065
     Dates: start: 20091230, end: 20100119
  6. VANCOMYCIN HCL [Suspect]
     Route: 065
     Dates: start: 20091230, end: 20100206
  7. TAZOCILLINE [Suspect]
     Route: 065
     Dates: start: 20100119, end: 20100206

REACTIONS (7)
  - ATROPHIC GLOSSITIS [None]
  - CHEILITIS [None]
  - DERMATITIS EXFOLIATIVE [None]
  - DRUG RASH WITH EOSINOPHILIA AND SYSTEMIC SYMPTOMS [None]
  - HYPERTHERMIA [None]
  - INFLAMMATION [None]
  - OEDEMA PERIPHERAL [None]
